FAERS Safety Report 5874719-X (Version None)
Quarter: 2008Q3

REPORT INFORMATION
  Report Type: 
  Country: None (occurrence: None)
  Receive Date: 20080909
  Receipt Date: 20080819
  Transmission Date: 20090109
  Serious: Yes (Other)
  Sender: FDA-Public Use
  Company Number: AU-JNJFOC-20080901437

PATIENT
  Sex: Male
  Weight: 95 kg

DRUGS (8)
  1. TRAMADOL HCL [Suspect]
     Indication: BACK PAIN
     Route: 048
     Dates: start: 20080506, end: 20080511
  2. ARTHRO-AID [Concomitant]
  3. ASPIRIN [Concomitant]
  4. ATENOLOL [Concomitant]
  5. CARDIZEM CD [Concomitant]
  6. ENDONE [Concomitant]
  7. KALMA [Concomitant]
  8. LIPITOR [Concomitant]

REACTIONS (1)
  - HICCUPS [None]
